FAERS Safety Report 7511601-6 (Version None)
Quarter: 2011Q2

REPORT INFORMATION
  Report Type: 
  Country: None (occurrence: None)
  Receive Date: 20110531
  Receipt Date: 20110525
  Transmission Date: 20111010
  Serious: Yes (Death, Disabling, Other)
  Sender: FDA-Public Use
  Company Number: GB-PFIZER INC-2010154584

PATIENT
  Age: 48 Year
  Sex: Male

DRUGS (2)
  1. SUNITINIB MALATE [Suspect]
     Indication: RENAL CELL CARCINOMA
     Dosage: 50 MG, 1X/DAY
     Route: 048
     Dates: start: 20080723
  2. ZOLEDRONIC ACID [Suspect]
     Indication: METASTASES TO BONE
     Dosage: 4 MG, 1X/DAY
     Route: 042
     Dates: start: 20080401, end: 20090901

REACTIONS (3)
  - MUCOSAL INFLAMMATION [None]
  - DEATH [None]
  - OSTEONECROSIS OF JAW [None]
